FAERS Safety Report 9370027 (Version 1)
Quarter: 2013Q2

REPORT INFORMATION
  Report Type: Spontaneous
  Country: SE (occurrence: SE)
  Receive Date: 20130626
  Receipt Date: 20130626
  Transmission Date: 20140414
  Serious: Yes (Other)
  Sender: FDA-Public Use
  Company Number: SE-PFIZER INC-2013188820

PATIENT
  Age: 85 Year
  Sex: Female

DRUGS (2)
  1. AMLODIPINE BESILATE [Suspect]
     Route: 065
  2. HYDROCHLOROTHIAZIDE [Suspect]
     Route: 065

REACTIONS (2)
  - Orthostatic hypotension [Unknown]
  - Dizziness [Unknown]
